FAERS Safety Report 17983665 (Version 1)
Quarter: 2020Q3

REPORT INFORMATION
  Report Type: Report from Study
  Country: IT (occurrence: IT)
  Receive Date: 20200706
  Receipt Date: 20200706
  Transmission Date: 20201103
  Serious: Yes (Hospitalization)
  Sender: FDA-Public Use
  Company Number: IT-TEVA-2020-IT-1795503

PATIENT
  Age: 64 Year
  Sex: Female

DRUGS (11)
  1. JANUVIA [Suspect]
     Active Substance: SITAGLIPTIN PHOSPHATE
     Indication: DIABETES MELLITUS
     Dosage: 100 MILLIGRAM
     Route: 048
     Dates: start: 20200117, end: 20200518
  2. FOLIC ACID. [Concomitant]
     Active Substance: FOLIC ACID
  3. DELTACORTENE 5 MG COMPRESSE [Suspect]
     Active Substance: PREDNISONE
     Indication: CANCER PAIN
     Dosage: 1 DOSAGEFORM
     Route: 048
     Dates: start: 20200101, end: 20200518
  4. LEVOFLOXACIN. [Concomitant]
     Active Substance: LEVOFLOXACIN
  5. ETACORTILEN 0,15% COLLIRIO, SOLUZIONE [Concomitant]
  6. ZARZIO 30 MU/0.5 ML SOLUTION FOR INJECTION OR INFUSION IN PRE?FILLED S [Concomitant]
     Active Substance: FILGRASTIM
  7. ACICLOVIR [Concomitant]
     Active Substance: ACYCLOVIR
  8. OMEPRAZOLE. [Concomitant]
     Active Substance: OMEPRAZOLE
  9. BISOPROLOL FUMARATE. [Concomitant]
     Active Substance: BISOPROLOL FUMARATE
  10. METFORMIN [Suspect]
     Active Substance: METFORMIN HYDROCHLORIDE
     Indication: DIABETES MELLITUS
     Dosage: 2000 MILLIGRAM
     Route: 048
     Dates: start: 20200117, end: 20200518
  11. BACTRIM [Concomitant]
     Active Substance: SULFAMETHOXAZOLE\TRIMETHOPRIM

REACTIONS (8)
  - Back pain [Recovering/Resolving]
  - Fall [Recovering/Resolving]
  - Dizziness [Recovering/Resolving]
  - Chest injury [Recovering/Resolving]
  - Tachycardia [Recovering/Resolving]
  - Syncope [Recovering/Resolving]
  - Hyperglycaemia [Recovering/Resolving]
  - Drug ineffective [Recovering/Resolving]

NARRATIVE: CASE EVENT DATE: 20200518
